FAERS Safety Report 4616513-3 (Version None)
Quarter: 2005Q1

REPORT INFORMATION
  Report Type: 
  Country: None (occurrence: None)
  Receive Date: 20050318
  Receipt Date: 20050308
  Transmission Date: 20050727
  Serious: Yes (Death)
  Sender: FDA-Public Use
  Company Number: 2005042723

PATIENT
  Sex: Male
  Weight: 79.3795 kg

DRUGS (1)
  1. NEURONTIN [Suspect]
     Indication: HYPOAESTHESIA
     Dosage: ORAL
     Route: 048

REACTIONS (2)
  - ADVERSE EVENT [None]
  - PNEUMONIA [None]
